FAERS Safety Report 4526062-9 (Version None)
Quarter: 2004Q4

REPORT INFORMATION
  Report Type: 
  Country: None (occurrence: None)
  Receive Date: 20041129
  Receipt Date: 20040914
  Transmission Date: 20050328
  Serious: Yes (Hospitalization, Other)
  Sender: FDA-Public Use
  Company Number: USA040774066

PATIENT
  Age: 50 Year
  Sex: Male

DRUGS (3)
  1. ZYPREXA [Suspect]
     Indication: SCHIZOPHRENIA
     Dosage: 15 MG DAY
     Dates: start: 19980910
  2. STELAZINE (TRIFLUOPRAZINE HYDROCHLORIDE) [Concomitant]
  3. PROLIXIN DECANOATE (FLUPHENAZINE DECANOATE) [Concomitant]

REACTIONS (1)
  - HYPERGLYCAEMIA [None]
